FAERS Safety Report 15097562 (Version 1)
Quarter: 2018Q3

REPORT INFORMATION
  Report Type: Spontaneous
  Country: US (occurrence: US)
  Receive Date: 20180702
  Receipt Date: 20180702
  Transmission Date: 20181010
  Serious: No
  Sender: FDA-Public Use
  Company Number: US-MYLANLABS-2018M1045997

PATIENT
  Sex: Male

DRUGS (1)
  1. ROSUVASTATIN CALCIUM TABLETS [Suspect]
     Active Substance: ROSUVASTATIN CALCIUM
     Indication: PRODUCT USED FOR UNKNOWN INDICATION
     Route: 065

REACTIONS (6)
  - Exercise tolerance decreased [Unknown]
  - Fear of falling [Unknown]
  - Muscle injury [Unknown]
  - Musculoskeletal discomfort [Unknown]
  - Muscular weakness [Unknown]
  - Balance disorder [Unknown]
